FAERS Safety Report 18153565 (Version 4)
Quarter: 2020Q3

REPORT INFORMATION
  Report Type: Spontaneous
  Country: US (occurrence: US)
  Receive Date: 20200816
  Receipt Date: 20200903
  Transmission Date: 20201103
  Serious: No
  Sender: FDA-Public Use
  Company Number: US-SA-2020SA210743

PATIENT

DRUGS (1)
  1. CABLIVI [Suspect]
     Active Substance: CAPLACIZUMAB-YHDP
     Indication: THROMBOTIC MICROANGIOPATHY
     Dosage: 11 MG, QD
     Route: 058
     Dates: start: 20200811

REACTIONS (9)
  - Headache [Unknown]
  - Injection site pain [Unknown]
  - Injection site erythema [Unknown]
  - Injection site haemorrhage [Unknown]
  - Injection site hypersensitivity [Unknown]
  - Menorrhagia [Unknown]
  - Feeling abnormal [Unknown]
  - Contusion [Unknown]
  - Gingival bleeding [Unknown]

NARRATIVE: CASE EVENT DATE: 202008
